FAERS Safety Report 17010713 (Version 2)
Quarter: 2020Q3

REPORT INFORMATION
  Report Type: Spontaneous
  Country: JP (occurrence: JP)
  Receive Date: 20191108
  Receipt Date: 20200911
  Transmission Date: 20201102
  Serious: Yes (Other)
  Sender: FDA-Public Use
  Company Number: JP-009507513-1911JPN000448J

PATIENT
  Sex: Female

DRUGS (2)
  1. BELSOMRA [Suspect]
     Active Substance: SUVOREXANT
     Indication: INSOMNIA
     Dosage: 15 DOSAGE FORM
     Route: 048
     Dates: start: 201910
  2. BELSOMRA [Suspect]
     Active Substance: SUVOREXANT
     Dosage: 15 DOSAGE FORM
     Route: 048
     Dates: start: 2019, end: 2019

REACTIONS (2)
  - Depressed level of consciousness [Recovered/Resolved]
  - Accidental overdose [Unknown]

NARRATIVE: CASE EVENT DATE: 201910
